FAERS Safety Report 6678725-7 (Version None)
Quarter: 2010Q2

REPORT INFORMATION
  Report Type: 
  Country: None (occurrence: None)
  Receive Date: 20100413
  Receipt Date: 20100407
  Transmission Date: 20101027
  Serious: Yes (Life-Threatening, Hospitalization)
  Sender: FDA-Public Use
  Company Number: PHHY2010DE22024

PATIENT
  Age: 64 Year
  Sex: Male

DRUGS (9)
  1. LOCOL [Suspect]
     Indication: CARDIOVASCULAR EVENT PROPHYLAXIS
     Dosage: 80 MG PER DAY
     Route: 048
     Dates: start: 20091101, end: 20100109
  2. EBRANTIL [Suspect]
     Indication: HYPERTENSION
     Dosage: 60 MG, BID
     Route: 048
     Dates: start: 20091101, end: 20100109
  3. DIOVAN [Concomitant]
     Indication: HYPERTENSION
     Dosage: 80 MG, BID
     Route: 048
     Dates: start: 20080101, end: 20100109
  4. NEBILET [Concomitant]
     Indication: HYPERTENSION
     Dosage: 5 MG, UNK
     Route: 048
     Dates: start: 20080101
  5. DELIX [Concomitant]
     Indication: HYPERTENSION
     Dosage: 10 MG, QD
     Route: 048
     Dates: start: 20080101, end: 20100109
  6. TORSEMIDE [Concomitant]
     Indication: HYPERTENSION
     Dosage: 10 MG, QD
     Route: 048
     Dates: start: 20080101
  7. CYNT [Concomitant]
     Indication: HYPERTENSION
     Dosage: 0.3 MG, BID
     Route: 048
     Dates: start: 20080101
  8. PANTOPRAZOLE SODIUM [Concomitant]
     Indication: PROPHYLAXIS AGAINST GASTROINTESTINAL ULCER
     Dosage: 40 MG, QD
     Route: 048
     Dates: start: 20080101
  9. ASPIRIN [Concomitant]
     Indication: PROPHYLAXIS
     Dosage: 100 MG, QD
     Route: 048
     Dates: start: 20080101

REACTIONS (11)
  - ASTHENIA [None]
  - DRUG TOXICITY [None]
  - DYSSTASIA [None]
  - FATIGUE [None]
  - HAEMATOCRIT DECREASED [None]
  - HAEMOGLOBIN DECREASED [None]
  - LIVER DISORDER [None]
  - RED BLOOD CELL COUNT DECREASED [None]
  - RENAL FAILURE ACUTE [None]
  - RHABDOMYOLYSIS [None]
  - URINE OUTPUT DECREASED [None]
